FAERS Safety Report 6633432-1 (Version None)
Quarter: 2010Q1

REPORT INFORMATION
  Report Type: 
  Country: None (occurrence: None)
  Receive Date: 20100312
  Receipt Date: 20090601
  Transmission Date: 20100710
  Serious: No
  Sender: FDA-Public Use
  Company Number: US-ABBOTT-09P-163-0577382-00

PATIENT
  Sex: Male
  Weight: 77.18 kg

DRUGS (1)
  1. ERYTHROMYCIN BASE [Suspect]
     Indication: SINUSITIS
     Route: 048
     Dates: start: 20000101, end: 20000101

REACTIONS (2)
  - FEELING ABNORMAL [None]
  - HEART RATE IRREGULAR [None]
